FAERS Safety Report 23830570 (Version 1)
Quarter: 2024Q2

REPORT INFORMATION
  Report Type: Report from Study
  Country: US (occurrence: US)
  Receive Date: 20240508
  Receipt Date: 20240508
  Transmission Date: 20240716
  Serious: Yes (Hospitalization, Other)
  Sender: FDA-Public Use
  Company Number: US-ABBVIE-5748966

PATIENT
  Sex: Male

DRUGS (1)
  1. SKYRIZI [Suspect]
     Active Substance: RISANKIZUMAB-RZAA
     Indication: Psoriasis
     Route: 058
     Dates: start: 20231201, end: 20240506

REACTIONS (4)
  - Gangrene [Recovering/Resolving]
  - Limb injury [Recovering/Resolving]
  - Neuropathy peripheral [Unknown]
  - Pain in extremity [Unknown]
